APPROVED DRUG PRODUCT: ACETAZOLAMIDE SODIUM
Active Ingredient: ACETAZOLAMIDE SODIUM
Strength: EQ 500MG BASE/VIAL
Dosage Form/Route: INJECTABLE;INJECTION
Application: A040784 | Product #001 | TE Code: AP
Applicant: XGEN PHARMACEUTICALS DJB INC
Approved: Dec 10, 2008 | RLD: No | RS: Yes | Type: RX